FAERS Safety Report 23077849 (Version 2)
Quarter: 2023Q4

REPORT INFORMATION
  Report Type: Report from Study
  Country: US (occurrence: US)
  Receive Date: 20231018
  Receipt Date: 20231024
  Transmission Date: 20240109
  Serious: No
  Sender: FDA-Public Use
  Company Number: US-BoehringerIngelheim-2023-BI-267498

PATIENT
  Age: 57 Year
  Sex: Female

DRUGS (1)
  1. OFEV [Suspect]
     Active Substance: NINTEDANIB
     Indication: Idiopathic pulmonary fibrosis
     Route: 048
     Dates: start: 20230925

REACTIONS (3)
  - Dyspepsia [Not Recovered/Not Resolved]
  - Constipation [Not Recovered/Not Resolved]
  - Gastrooesophageal reflux disease [Unknown]

NARRATIVE: CASE EVENT DATE: 20231002
